FAERS Safety Report 18368215 (Version 1)
Quarter: 2020Q4

REPORT INFORMATION
  Report Type: Spontaneous
  Country: US (occurrence: US)
  Receive Date: 20201009
  Receipt Date: 20201009
  Transmission Date: 20210114
  Serious: Yes (Hospitalization)
  Sender: FDA-Public Use
  Company Number: US-PFIZER INC-2020389779

PATIENT
  Age: 5 Year
  Sex: Female

DRUGS (1)
  1. XELJANZ [Suspect]
     Active Substance: TOFACITINIB CITRATE
     Indication: JUVENILE IDIOPATHIC ARTHRITIS
     Dosage: 2.5 MG, 2X/DAY (TAKE ONE-HALF TABLET (2.5 MG))
     Dates: start: 202005

REACTIONS (1)
  - Haemophagocytic lymphohistiocytosis [Unknown]
